FAERS Safety Report 9169422 (Version 1)
Quarter: 2013Q1

REPORT INFORMATION
  Report Type: Spontaneous
  Country: US (occurrence: US)
  Receive Date: 20130318
  Receipt Date: 20130318
  Transmission Date: 20140127
  Serious: No
  Sender: FDA-Public Use
  Company Number: US-ASTRAZENECA-2013SE14104

PATIENT
  Age: 74 Year
  Sex: Female
  Weight: 77.1 kg

DRUGS (2)
  1. PRILOSEC [Suspect]
     Indication: GASTROOESOPHAGEAL REFLUX DISEASE
     Dosage: 20MG BID PRN
     Route: 048
     Dates: start: 2009
  2. PRILOSEC [Suspect]
     Indication: GASTROOESOPHAGEAL REFLUX DISEASE
     Dosage: 20 MG QID PRN
     Route: 048

REACTIONS (3)
  - Oesophagitis ulcerative [Unknown]
  - Off label use [Unknown]
  - Intentional drug misuse [Unknown]
